FAERS Safety Report 6393814-2 (Version None)
Quarter: 2009Q4

REPORT INFORMATION
  Report Type: 
  Country: None (occurrence: None)
  Receive Date: 20091008
  Receipt Date: 20090929
  Transmission Date: 20100525
  Serious: Yes (Hospitalization)
  Sender: FDA-Public Use
  Company Number: US-WYE-H09871609

PATIENT
  Sex: Male
  Weight: 94.89 kg

DRUGS (4)
  1. METHYLNALTREXONE BROMIDE [Suspect]
     Indication: CONSTIPATION
     Route: 058
     Dates: start: 20090610
  2. OXYCODONE [Concomitant]
     Indication: BACK PAIN
     Route: 048
     Dates: start: 20030101
  3. TRICOR [Concomitant]
     Indication: HYPERLIPIDAEMIA
     Dosage: UNSPECIFIED
     Route: 065
  4. DIOVAN [Concomitant]
     Indication: HYPERTENSION
     Dosage: UNSPECIFIED
     Route: 065
     Dates: start: 20060101

REACTIONS (2)
  - CONDITION AGGRAVATED [None]
  - HYPERTENSION [None]
